FAERS Safety Report 10469325 (Version 1)
Quarter: 2014Q3

REPORT INFORMATION
  Report Type: Spontaneous
  Country: MX (occurrence: MX)
  Receive Date: 20140923
  Receipt Date: 20140923
  Transmission Date: 20150326
  Serious: Yes (Other)
  Sender: FDA-Public Use
  Company Number: PHHY2014MX123457

PATIENT
  Age: 70 Year
  Sex: Male

DRUGS (6)
  1. ONBREZ [Suspect]
     Active Substance: INDACATEROL
     Indication: CHRONIC OBSTRUCTIVE PULMONARY DISEASE
     Dosage: 1 DF, DAILY
     Route: 055
  2. SINTROM [Suspect]
     Active Substance: ACENOCOUMAROL
     Dosage: UNK 3/4 TABLET PER DAY
     Dates: start: 201407
  3. SINTROM [Suspect]
     Active Substance: ACENOCOUMAROL
     Dosage: UNK 1/2 TABLET PER DAY
     Dates: start: 201407
  4. SINTROM [Suspect]
     Active Substance: ACENOCOUMAROL
     Indication: MITRAL VALVE REPLACEMENT
     Dosage: 4 MG
  5. SOTAPER [Concomitant]
     Indication: BLOOD PRESSURE ABNORMAL
     Dosage: 1 DF, DAILY
     Dates: start: 201405
  6. FOLIC ACID. [Concomitant]
     Active Substance: FOLIC ACID
     Indication: HAEMOGLOBIN DECREASED
     Dosage: 2 DF, DAILY
     Dates: start: 201407

REACTIONS (1)
  - Prostatic haemorrhage [Recovered/Resolved]
